FAERS Safety Report 24162354 (Version 1)
Quarter: 2024Q3

REPORT INFORMATION
  Report Type: Report from Study
  Country: CA (occurrence: CA)
  Receive Date: 20240801
  Receipt Date: 20240801
  Transmission Date: 20241017
  Serious: Yes (Other)
  Sender: BIOCON
  Company Number: CA-BIOCON BIOLOGICS LIMITED-BBL2024005514

PATIENT

DRUGS (2)
  1. HULIO [Suspect]
     Active Substance: ADALIMUMAB-FKJP
     Indication: Rheumatoid arthritis
     Dosage: 40 MILLIGRAM, Q2W, SOLUTION
     Route: 058
  2. HULIO [Suspect]
     Active Substance: ADALIMUMAB-FKJP
     Dosage: 40 MILLIGRAM, Q2W, SOLUTION
     Route: 058

REACTIONS (5)
  - Gout [Unknown]
  - Diarrhoea [Unknown]
  - COVID-19 pneumonia [Unknown]
  - Asthma [Unknown]
  - Inappropriate schedule of product administration [Unknown]
